FAERS Safety Report 8784458 (Version 2)
Quarter: 2012Q4

REPORT INFORMATION
  Report Type: 
  Country: US (occurrence: US)
  Receive Date: 20120913
  Receipt Date: 20121029
  Transmission Date: 20130627
  Serious: No
  Sender: FDA-Public Use
  Company Number: US-PFIZER INC-2012224453

PATIENT
  Age: 51 Year
  Sex: Female
  Weight: 82 kg

DRUGS (13)
  1. LYRICA [Suspect]
     Indication: HERNIATED DISC
     Dosage: 100 mg, 1x/day
     Route: 048
     Dates: start: 201111
  2. LYRICA [Suspect]
     Indication: KNEE PAIN
     Dosage: 75 mg, 2x/day
     Route: 048
  3. LYRICA [Suspect]
     Indication: NEUROPATHIC PAIN
     Dosage: 75 mg, 2x/day
     Route: 048
     Dates: start: 20120306
  4. LYRICA [Suspect]
     Dosage: 100 mg, 2x/day
     Route: 048
     Dates: start: 20120507, end: 20120625
  5. LEVOTHYROXINE [Concomitant]
     Dosage: 25 mg, UNK
  6. PANTOPRAZOLE [Concomitant]
     Dosage: 40 mg, UNK
  7. NAPROXEN [Concomitant]
     Dosage: 500 mg, 2x/day
  8. SIMVASTATIN [Concomitant]
     Dosage: 20 ug, 1x/day
     Route: 048
  9. SYNTHROID [Concomitant]
     Dosage: 25 ug, 1x/day
     Route: 048
  10. ZYRTEC [Concomitant]
     Dosage: 10 mg, 1x/day
     Route: 048
  11. PROTONIX [Concomitant]
     Dosage: 40 mg, 1x/day
  12. NAPROSYN [Concomitant]
     Dosage: 500 mg, 2x/day
     Route: 048
  13. FIORICET [Concomitant]
     Dosage: UNK

REACTIONS (2)
  - Weight increased [Not Recovered/Not Resolved]
  - Pain [Unknown]
